FAERS Safety Report 7626161-9 (Version None)
Quarter: 2011Q3

REPORT INFORMATION
  Report Type: 
  Country: None (occurrence: None)
  Receive Date: 20110721
  Receipt Date: 20110706
  Transmission Date: 20111222
  Serious: Yes (Hospitalization)
  Sender: FDA-Public Use
  Company Number: PHHY2011MX61166

PATIENT
  Sex: Male

DRUGS (2)
  1. EXFORGE [Suspect]
     Indication: HYPERTENSION
     Dosage: 1 TABLET (160/5 MG) PER DAY
     Dates: start: 20110416, end: 20110701
  2. EXFORGE [Suspect]
     Dosage: 1 TABLET (160/5 MG) PER DAY
     Dates: start: 20110707

REACTIONS (3)
  - ABDOMINAL PAIN UPPER [None]
  - OBSTRUCTION GASTRIC [None]
  - VOMITING [None]
